FAERS Safety Report 10950321 (Version 2)
Quarter: 2015Q2

REPORT INFORMATION
  Report Type: Spontaneous
  Country: US (occurrence: US)
  Receive Date: 20150324
  Receipt Date: 20150424
  Transmission Date: 20150821
  Serious: Yes (Death, Hospitalization, Other)
  Sender: FDA-Public Use
  Company Number: US-INCYTE CORPORATION-2015IN001201

PATIENT
  Age: 74 Year
  Sex: Male
  Weight: 65.76 kg

DRUGS (19)
  1. HYDREA [Concomitant]
     Active Substance: HYDROXYUREA
     Dosage: UNK
     Dates: start: 20140416, end: 20140521
  2. CALCIUM CARBONATE. [Concomitant]
     Active Substance: CALCIUM CARBONATE
  3. HYDREA [Concomitant]
     Active Substance: HYDROXYUREA
     Dosage: 500 MG, QD
     Dates: start: 20130528
  4. BACTRIM [Concomitant]
     Active Substance: SULFAMETHOXAZOLE\TRIMETHOPRIM
  5. HYDREA [Concomitant]
     Active Substance: HYDROXYUREA
     Dosage: 500 MG, QD
     Dates: start: 20140605
  6. FENOFIBRIC ACID. [Concomitant]
     Active Substance: FENOFIBRIC ACID
  7. VITAMIN D2 [Concomitant]
     Active Substance: ERGOCALCIFEROL
  8. ASPIRIN. [Concomitant]
     Active Substance: ASPIRIN
  9. ALENDRONATE [Concomitant]
     Active Substance: ALENDRONATE SODIUM
  10. CYTARABINE. [Concomitant]
     Active Substance: CYTARABINE
  11. PROPRANOLOL [Concomitant]
     Active Substance: PROPRANOLOL\PROPRANOLOL HYDROCHLORIDE
  12. CLOPIDOGREL [Concomitant]
     Active Substance: CLOPIDOGREL BISULFATE
  13. JAKAFI [Suspect]
     Active Substance: RUXOLITINIB
     Dosage: 10 MG, BID
     Route: 048
     Dates: start: 20150220, end: 20150315
  14. HYDREA [Concomitant]
     Active Substance: HYDROXYUREA
     Dosage: 1000 MG ON MONDAYS, WEDNESDAYS AND FRIDAYS AND 500 MG ON OTHER DAYS
     Dates: start: 20141203
  15. PROCRIT [Concomitant]
     Active Substance: ERYTHROPOIETIN
  16. JAKAFI [Suspect]
     Active Substance: RUXOLITINIB
     Indication: MYELOFIBROSIS
     Dosage: 10 MG, BID
     Route: 048
     Dates: start: 201310
  17. JAKAFI [Suspect]
     Active Substance: RUXOLITINIB
     Dosage: 10 MG IN AM AND 5 MG IN PM
     Route: 048
     Dates: start: 20140115, end: 20140401
  18. HYDREA [Concomitant]
     Active Substance: HYDROXYUREA
     Dosage: 1000 MG, QD
  19. LISINOPRIL. [Concomitant]
     Active Substance: LISINOPRIL

REACTIONS (20)
  - Weight decreased [Unknown]
  - Sinusitis [Unknown]
  - Decreased appetite [Unknown]
  - Atrial fibrillation [Unknown]
  - Urinary tract disorder [Unknown]
  - Thirst [Unknown]
  - Dyspnoea [Unknown]
  - Nausea [Unknown]
  - Thrombocytopenia [Unknown]
  - Cytopenia [Unknown]
  - Haemoglobin decreased [Unknown]
  - Myalgia [Unknown]
  - Erythema [Unknown]
  - Death [Fatal]
  - Arthralgia [Unknown]
  - Vomiting [Unknown]
  - Myelofibrosis [Unknown]
  - Leukocytosis [Unknown]
  - Fatigue [Unknown]
  - Chest pain [Unknown]

NARRATIVE: CASE EVENT DATE: 20140416
